FAERS Safety Report 5466121-X (Version None)
Quarter: 2007Q3

REPORT INFORMATION
  Report Type: 
  Country: None (occurrence: None)
  Receive Date: 20070924
  Receipt Date: 20070919
  Transmission Date: 20080115
  Serious: Yes (Death, Other)
  Sender: FDA-Public Use
  Company Number: JP-ABBOTT-07P-087-0417437-00

PATIENT
  Age: 79 Year
  Sex: Male
  Weight: 50 kg

DRUGS (4)
  1. CLARITHROMYCIN [Suspect]
     Indication: PNEUMONIA MYCOPLASMAL
     Route: 048
     Dates: start: 20061023, end: 20061031
  2. CLARITHROMYCIN [Suspect]
     Indication: PNEUMONIA BACTERIAL
  3. CEFTRIAXONE SODIUM [Suspect]
     Indication: PNEUMONIA MYCOPLASMAL
     Route: 042
     Dates: start: 20061017, end: 20061023
  4. PAZUFLOXACIN MESILATE [Suspect]
     Indication: PNEUMONIA MYCOPLASMAL
     Route: 042
     Dates: start: 20061101

REACTIONS (6)
  - CHEST X-RAY ABNORMAL [None]
  - COUGH [None]
  - DYSPNOEA EXERTIONAL [None]
  - PULMONARY FIBROSIS [None]
  - RALES [None]
  - RESPIRATORY FAILURE [None]
